FAERS Safety Report 8487557-9 (Version None)
Quarter: 2012Q3

REPORT INFORMATION
  Report Type: 
  Country: None (occurrence: None)
  Receive Date: 20120705
  Receipt Date: 20120626
  Transmission Date: 20120928
  Serious: Yes (Other)
  Sender: FDA-Public Use
  Company Number: US-PERRIGO-12US004757

PATIENT
  Sex: Male
  Weight: 72.562 kg

DRUGS (1)
  1. CETIRIZINE HCL [Suspect]
     Indication: SEASONAL ALLERGY
     Dosage: 10 MG, QD
     Route: 048
     Dates: start: 20120516, end: 20120517

REACTIONS (18)
  - EYELID OEDEMA [None]
  - BLEPHARITIS [None]
  - VIRAL RASH [None]
  - STASIS DERMATITIS [None]
  - RASH PRURITIC [None]
  - BLISTER [None]
  - URTICARIA [None]
  - RASH MACULAR [None]
  - ERYTHEMA OF EYELID [None]
  - ERYTHEMA [None]
  - SKIN EXFOLIATION [None]
  - SKIN CHAPPED [None]
  - DRY SKIN [None]
  - DERMATITIS ATOPIC [None]
  - EYELID EXFOLIATION [None]
  - PAIN [None]
  - DYSHIDROSIS [None]
  - MACULE [None]
